FAERS Safety Report 11368561 (Version 1)
Quarter: 2015Q3

REPORT INFORMATION
  Report Type: Spontaneous
  Country: GB (occurrence: None)
  Receive Date: 20150810
  Receipt Date: 20150810
  Transmission Date: 20151125
  Serious: Yes (Death, Hospitalization)
  Sender: FDA-Public Use
  Company Number: NSR_02191_2015

PATIENT
  Age: 39 Year
  Sex: Male
  Weight: 88 kg

DRUGS (4)
  1. TRAMADOL (TRAMADOL) [Suspect]
     Active Substance: TRAMADOL
     Indication: PRODUCT USED FOR UNKNOWN INDICATION
  2. DIAZEPAM (DIAZEPAM) [Suspect]
     Active Substance: DIAZEPAM
     Indication: PRODUCT USED FOR UNKNOWN INDICATION
  3. METHADONE [Suspect]
     Active Substance: METHADONE HYDROCHLORIDE
     Indication: PRODUCT USED FOR UNKNOWN INDICATION
  4. NORDAZEPAM (NORDAZEPAM) [Suspect]
     Active Substance: NORDAZEPAM
     Indication: PRODUCT USED FOR UNKNOWN INDICATION
     Dosage: DF

REACTIONS (13)
  - Blood pressure decreased [None]
  - Myocardial haemorrhage [None]
  - Left ventricular hypertrophy [None]
  - Pulmonary congestion [None]
  - Hepatic cirrhosis [None]
  - Varices oesophageal [None]
  - Jaundice [None]
  - Troponin T increased [None]
  - Cardiac arrest [None]
  - Pulmonary oedema [None]
  - Fall [None]
  - Tachycardia [None]
  - Scar [None]

NARRATIVE: CASE EVENT DATE: 20150807
